FAERS Safety Report 8387913-3 (Version None)
Quarter: 2012Q2

REPORT INFORMATION
  Report Type: 
  Country: None (occurrence: None)
  Receive Date: 20120525
  Receipt Date: 20120521
  Transmission Date: 20120825
  Serious: Yes (Other)
  Sender: FDA-Public Use
  Company Number: US-BAYER-2012-038449

PATIENT
  Age: 35 Year
  Sex: Female

DRUGS (16)
  1. YASMIN [Suspect]
     Indication: METRORRHAGIA
     Dosage: UNK
     Dates: start: 20090101, end: 20090501
  2. PREDNISONE TAB [Concomitant]
     Dosage: 2 MG, UNK
     Route: 048
     Dates: start: 20100114
  3. MUCINEX DM [Concomitant]
     Dosage: UNK
     Route: 048
     Dates: start: 20100123, end: 20100310
  4. YASMIN [Suspect]
     Dosage: UNK
     Dates: start: 20091201, end: 20100201
  5. ZYRTEC [Concomitant]
     Dosage: UNK
     Route: 048
     Dates: start: 20100203
  6. AZITHROMYCIN [Concomitant]
     Dosage: UNK
     Route: 048
     Dates: start: 20100310
  7. METHYLPREDNISOLONE [Concomitant]
     Dosage: UNK
     Route: 048
     Dates: start: 20100310
  8. YAZ [Suspect]
     Indication: METRORRHAGIA
     Dosage: UNK
     Dates: start: 20090101, end: 20090501
  9. NORINYL [Concomitant]
  10. SUDAFED 12 HOUR [Concomitant]
     Dosage: UNK
     Route: 048
     Dates: start: 20100203
  11. LOTRIMIN [Concomitant]
     Dosage: UNK
     Route: 061
     Dates: start: 20100203
  12. TYLENOL WITH CODEIN #2 [Concomitant]
     Dosage: UNK
     Route: 048
     Dates: start: 20100310
  13. DROSPIRENONE AND ETHINYL ESTRADIOL [Suspect]
     Dosage: UNK
     Dates: start: 20090101, end: 20090501
  14. DROSPIRENONE AND ETHINYL ESTRADIOL [Suspect]
     Dosage: UNK
     Dates: start: 20091201, end: 20100201
  15. YAZ [Suspect]
     Dosage: UNK
     Dates: start: 20091201, end: 20100201
  16. PROVENTIL [Concomitant]
     Dosage: UNK
     Route: 048
     Dates: start: 20100123, end: 20100203

REACTIONS (6)
  - DEPRESSION [None]
  - FEAR OF DEATH [None]
  - DEEP VEIN THROMBOSIS [None]
  - EMOTIONAL DISTRESS [None]
  - INJURY [None]
  - NERVOUSNESS [None]
